FAERS Safety Report 13637067 (Version 1)
Quarter: 2017Q2

REPORT INFORMATION
  Report Type: Report from Study
  Country: US (occurrence: US)
  Receive Date: 20170609
  Receipt Date: 20170609
  Transmission Date: 20170830
  Serious: Yes (Hospitalization)
  Sender: FDA-Public Use
  Company Number: US-VERTEX PHARMACEUTICALS-2017-002614

PATIENT
  Age: 17 Year
  Sex: Female

DRUGS (19)
  1. ZOSYN [Suspect]
     Active Substance: PIPERACILLIN SODIUM\TAZOBACTAM SODIUM
     Indication: COUGH
  2. ALBUTEROL. [Concomitant]
     Active Substance: ALBUTEROL
  3. PULMOZYME [Concomitant]
     Active Substance: DORNASE ALFA
  4. TOBRAMYCIN. [Suspect]
     Active Substance: TOBRAMYCIN
     Indication: COUGH
  5. AMIKACIN [Concomitant]
     Active Substance: AMIKACIN
  6. ZANTAC [Concomitant]
     Active Substance: RANITIDINE HYDROCHLORIDE
  7. ORKAMBI [Suspect]
     Active Substance: IVACAFTOR\LUMACAFTOR
     Indication: CYSTIC FIBROSIS
     Dosage: UNK
     Route: 048
     Dates: start: 20150914
  8. TOBRAMYCIN. [Suspect]
     Active Substance: TOBRAMYCIN
     Indication: PULMONARY FUNCTION TEST DECREASED
     Dosage: UNK
     Route: 042
  9. SERTRALINE [Concomitant]
     Active Substance: SERTRALINE HYDROCHLORIDE
  10. CARAFATE [Concomitant]
     Active Substance: SUCRALFATE
  11. ZOSYN [Suspect]
     Active Substance: PIPERACILLIN SODIUM\TAZOBACTAM SODIUM
     Indication: PULMONARY FUNCTION TEST DECREASED
     Dosage: UNK
     Route: 042
  12. ZOSYN [Suspect]
     Active Substance: PIPERACILLIN SODIUM\TAZOBACTAM SODIUM
     Indication: SPUTUM INCREASED
  13. HYPERSAL [Concomitant]
  14. CLOFAZIMINE [Concomitant]
     Active Substance: CLOFAZIMINE
  15. CIPROFLOXACIN. [Concomitant]
     Active Substance: CIPROFLOXACIN
  16. ORKAMBI [Suspect]
     Active Substance: IVACAFTOR\LUMACAFTOR
     Dosage: 2 DF (200-125 MG EACH), BID
     Route: 048
     Dates: start: 20170414
  17. BUPROPION. [Concomitant]
     Active Substance: BUPROPION
  18. LANSOPRAZOLE. [Concomitant]
     Active Substance: LANSOPRAZOLE
  19. TOBRAMYCIN. [Suspect]
     Active Substance: TOBRAMYCIN
     Indication: SPUTUM INCREASED

REACTIONS (5)
  - Pulmonary function test decreased [Recovered/Resolved]
  - Nausea [Unknown]
  - Diarrhoea [Unknown]
  - Cough [Recovered/Resolved]
  - Sputum increased [Recovered/Resolved]

NARRATIVE: CASE EVENT DATE: 201703
